FAERS Safety Report 6749632-6 (Version None)
Quarter: 2010Q2

REPORT INFORMATION
  Report Type: 
  Country: None (occurrence: None)
  Receive Date: 20100601
  Receipt Date: 20100528
  Transmission Date: 20101027
  Serious: Yes (Hospitalization)
  Sender: FDA-Public Use
  Company Number: A0861986A

PATIENT
  Age: 61 Year
  Sex: Male

DRUGS (10)
  1. AVANDIA [Suspect]
     Dosage: 2TAB TWICE PER DAY
     Route: 048
     Dates: end: 20100406
  2. COREG CR [Suspect]
     Indication: DRUG USE FOR UNKNOWN INDICATION
     Dosage: 40CAP PER DAY
     Route: 048
     Dates: end: 20100406
  3. GLYBURIDE AND METFORMIN HYDROCHLORIDE [Concomitant]
  4. ECOTRIN [Concomitant]
  5. IMDUR [Concomitant]
  6. CRESTOR [Concomitant]
  7. NORVASC [Concomitant]
  8. ENALAPRIL [Concomitant]
  9. ALTACE [Concomitant]
  10. PLAVIX [Concomitant]

REACTIONS (3)
  - DYSPNOEA [None]
  - LUNG DISORDER [None]
  - MYOCARDIAL INFARCTION [None]
